FAERS Safety Report 17439054 (Version 2)
Quarter: 2020Q1

REPORT INFORMATION
  Report Type: Spontaneous
  Country: RO (occurrence: RO)
  Receive Date: 20200220
  Receipt Date: 20200306
  Transmission Date: 20200409
  Serious: Yes (Other)
  Sender: FDA-Public Use
  Company Number: RO-AUROBINDO-AUR-APL-2020-008569

PATIENT
  Age: 56 Year
  Sex: Male

DRUGS (3)
  1. TAMSULOSIN [Suspect]
     Active Substance: TAMSULOSIN
     Indication: PRODUCT USED FOR UNKNOWN INDICATION
     Dosage: UNK (STOP DATE:-10-DEC-2019 TO 15-DEC-2019)
     Route: 065
     Dates: start: 2019, end: 201912
  2. XATRAL [Suspect]
     Active Substance: ALFUZOSIN
     Indication: PROSTATITIS
     Dosage: 10 MILLIGRAM, ONCE A DAY
     Route: 048
     Dates: start: 202001
  3. MARATHON [Concomitant]
     Indication: PRODUCT USED FOR UNKNOWN INDICATION
     Dosage: UNK
     Route: 065
     Dates: start: 202002

REACTIONS (3)
  - Neck pain [Recovered/Resolved]
  - Erectile dysfunction [Not Recovered/Not Resolved]
  - Pain [Recovered/Resolved]
